FAERS Safety Report 19303483 (Version 4)
Quarter: 2021Q3

REPORT INFORMATION
  Report Type: Report from Study
  Country: BR (occurrence: BR)
  Receive Date: 20210525
  Receipt Date: 20210726
  Transmission Date: 20211014
  Serious: Yes (Other)
  Sender: FDA-Public Use
  Company Number: NVSC2021BR111446

PATIENT
  Age: 46 Year
  Sex: Male
  Weight: 67.5 kg

DRUGS (7)
  1. DESOL [Concomitant]
     Indication: PRODUCT USED FOR UNKNOWN INDICATION
     Dosage: 35 DRP, QW
     Route: 048
  2. LAVITAN A Z MAIS [Concomitant]
     Indication: PRODUCT USED FOR UNKNOWN INDICATION
     Dosage: 1 DF, QD
     Route: 048
  3. COSENTYX [Suspect]
     Active Substance: SECUKINUMAB
     Indication: ANKYLOSING SPONDYLITIS
     Dosage: 150 MG, QMO (1 PEN)
     Route: 058
     Dates: start: 20180419
  4. COSENTYX [Suspect]
     Active Substance: SECUKINUMAB
     Dosage: UNK
     Route: 065
     Dates: start: 20210525
  5. COSENTYX [Suspect]
     Active Substance: SECUKINUMAB
     Dosage: 150 MG, QMO
     Route: 065
     Dates: start: 201807
  6. COSENTYX [Suspect]
     Active Substance: SECUKINUMAB
     Dosage: UNK
     Route: 065
     Dates: start: 20210419
  7. COSENTYX [Suspect]
     Active Substance: SECUKINUMAB
     Dosage: UNK
     Route: 065
     Dates: start: 20210624

REACTIONS (8)
  - Ankylosing spondylitis [Recovered/Resolved]
  - Uveitis [Recovered/Resolved]
  - Musculoskeletal stiffness [Recovered/Resolved]
  - Eye injury [Recovered/Resolved]
  - Pain [Not Recovered/Not Resolved]
  - Joint range of motion decreased [Recovered/Resolved]
  - Hypokinesia [Recovered/Resolved]
  - Chills [Recovered/Resolved]

NARRATIVE: CASE EVENT DATE: 2018
